FAERS Safety Report 17463853 (Version 1)
Quarter: 2020Q1

REPORT INFORMATION
  Report Type: Spontaneous
  Country: ES (occurrence: ES)
  Receive Date: 20200226
  Receipt Date: 20200226
  Transmission Date: 20200409
  Serious: Yes (Hospitalization)
  Sender: FDA-Public Use
  Company Number: ES-BAUSCH-BL-2020-006132

PATIENT
  Age: 62 Year
  Sex: Female

DRUGS (8)
  1. OXALIPLATIN. [Suspect]
     Active Substance: OXALIPLATIN
     Dosage: LAST CYCLE
     Route: 065
     Dates: start: 201809, end: 201809
  2. OXALIPLATIN. [Suspect]
     Active Substance: OXALIPLATIN
     Indication: ADENOCARCINOMA GASTRIC
     Route: 065
     Dates: start: 201806, end: 201806
  3. CAPECITABINE. [Suspect]
     Active Substance: CAPECITABINE
     Dosage: LAST CYCLE
     Route: 065
     Dates: start: 201809, end: 201809
  4. FLUOROURACIL. [Suspect]
     Active Substance: FLUOROURACIL
     Dosage: LAST CYCLE
     Route: 065
     Dates: start: 201809, end: 201809
  5. CAPECITABINE. [Suspect]
     Active Substance: CAPECITABINE
     Indication: ADENOCARCINOMA GASTRIC
     Route: 065
     Dates: start: 201806, end: 201806
  6. FOLIC ACID. [Suspect]
     Active Substance: FOLIC ACID
     Indication: ADENOCARCINOMA GASTRIC
     Route: 065
     Dates: start: 201806, end: 201806
  7. FLUOROURACIL. [Suspect]
     Active Substance: FLUOROURACIL
     Indication: ADENOCARCINOMA GASTRIC
     Route: 065
     Dates: start: 201806, end: 201806
  8. FOLIC ACID. [Suspect]
     Active Substance: FOLIC ACID
     Dosage: LAST CYCLE
     Route: 065
     Dates: start: 201809, end: 201809

REACTIONS (5)
  - Mucosal inflammation [Recovering/Resolving]
  - Asthenia [Recovering/Resolving]
  - Neuritis [Recovering/Resolving]
  - General physical health deterioration [Recovering/Resolving]
  - Oral candidiasis [Recovering/Resolving]

NARRATIVE: CASE EVENT DATE: 201809
